FAERS Safety Report 8597117-7 (Version None)
Quarter: 2012Q3

REPORT INFORMATION
  Report Type: 
  Country: None (occurrence: None)
  Receive Date: 20120816
  Receipt Date: 20120806
  Transmission Date: 20120928
  Serious: No
  Sender: FDA-Public Use
  Company Number: US-BIOGENIDEC-2012BI029843

PATIENT
  Age: 57 Year
  Sex: Female

DRUGS (3)
  1. INTERFERON BETA-1A [Concomitant]
     Indication: MULTIPLE SCLEROSIS
     Route: 030
     Dates: start: 20100829
  2. TYSABRI [Suspect]
     Indication: MULTIPLE SCLEROSIS
     Route: 042
     Dates: start: 20120518
  3. INTERFERON BETA-1A [Concomitant]
     Route: 030

REACTIONS (2)
  - LABYRINTHITIS [None]
  - SINUSITIS [None]
